FAERS Safety Report 7286122-9 (Version None)
Quarter: 2011Q1

REPORT INFORMATION
  Report Type: 
  Country: None (occurrence: None)
  Receive Date: 20110210
  Receipt Date: 20110128
  Transmission Date: 20110831
  Serious: Yes (Other)
  Sender: FDA-Public Use
  Company Number: DE-ELI_LILLY_AND_COMPANY-DE201101007342

PATIENT
  Age: 29 Year
  Sex: Male
  Weight: 92 kg

DRUGS (1)
  1. STRATTERA [Suspect]
     Indication: ATTENTION DEFICIT/HYPERACTIVITY DISORDER
     Dosage: 1 D/F, UNK
     Route: 048
     Dates: start: 20100917, end: 20100927

REACTIONS (1)
  - HYPERTENSION [None]
